FAERS Safety Report 8925248 (Version 1)
Quarter: 2012Q4

REPORT INFORMATION
  Report Type: 
  Country: FR (occurrence: FR)
  Receive Date: 20121126
  Receipt Date: 20121126
  Transmission Date: 20130627
  Serious: Yes (Hospitalization)
  Sender: FDA-Public Use
  Company Number: FR-ASTRAZENECA-2012SE86674

PATIENT
  Age: 11119 Day
  Sex: Female

DRUGS (6)
  1. XYLOCAINE [Suspect]
     Indication: INDUCTION OF ANAESTHESIA
     Dosage: Once/Single administration
     Route: 042
     Dates: start: 20121025, end: 20121025
  2. DIPRIVAN [Suspect]
     Indication: INDUCTION OF ANAESTHESIA
     Dosage: Once/Single administration
     Route: 042
     Dates: start: 20121025, end: 20121025
  3. REMIFENTANYL MYLAN [Suspect]
     Indication: INDUCTION OF ANAESTHESIA
     Dosage: Once/Single administration
     Route: 042
     Dates: start: 20121025, end: 20121025
  4. TRACRIUM [Suspect]
     Indication: INDUCTION OF ANAESTHESIA
     Dosage: Once/Single administration
     Route: 042
     Dates: start: 20121025, end: 20121025
  5. PATENTED BLUE V [Suspect]
     Indication: ANAESTHESIA
     Route: 042
     Dates: start: 20121025, end: 20121025
  6. PRAZEPAM [Concomitant]

REACTIONS (3)
  - Cyanosis [Recovered/Resolved]
  - Face oedema [Recovered/Resolved]
  - Tachycardia [Recovered/Resolved]
